FAERS Safety Report 5929297-3 (Version None)
Quarter: 2008Q4

REPORT INFORMATION
  Report Type: 
  Country: None (occurrence: None)
  Receive Date: 20081023
  Receipt Date: 20081023
  Transmission Date: 20090506
  Serious: Yes (Life-Threatening, Hospitalization)
  Sender: FDA-Public Use
  Company Number: None

PATIENT
  Age: 31 Year
  Sex: Female
  Weight: 63.1 kg

DRUGS (7)
  1. EPOPROSTENOL SODIUM [Suspect]
     Indication: PULMONARY ARTERIAL HYPERTENSION
     Dosage: 5 NG/KG/MIN DAILY IV DRIP
     Route: 041
     Dates: start: 20080227
  2. ESOMEPRAZOLE MAGNESIUM [Concomitant]
  3. MYCOPHENOLATE MOEFETIL [Concomitant]
  4. ACETYLCYSTEINE [Concomitant]
  5. GABAPENTIN [Concomitant]
  6. ENOXAPARIN SODIUM [Concomitant]
  7. MORPHINE [Concomitant]

REACTIONS (12)
  - AGITATION [None]
  - CONDITION AGGRAVATED [None]
  - CONFUSIONAL STATE [None]
  - DEVICE FAILURE [None]
  - HEADACHE [None]
  - HEART RATE INCREASED [None]
  - HYPOGLYCAEMIA [None]
  - HYPOTENSION [None]
  - HYPOXIA [None]
  - INCORRECT DOSE ADMINISTERED [None]
  - PULMONARY HYPERTENSION [None]
  - RESPIRATORY RATE INCREASED [None]
